FAERS Safety Report 7904239-X (Version None)
Quarter: 2011Q4

REPORT INFORMATION
  Report Type: 
  Country: None (occurrence: None)
  Receive Date: 20111109
  Receipt Date: 20111031
  Transmission Date: 20120403
  Serious: Yes (Other)
  Sender: FDA-Public Use
  Company Number: US-BAYER-2011-028884

PATIENT
  Sex: Female
  Weight: 76.19 kg

DRUGS (1)
  1. YAZ [Suspect]
     Indication: CONTRACEPTION
     Dosage: UNK
     Dates: start: 20070101, end: 20090901

REACTIONS (5)
  - INJURY [None]
  - ANHEDONIA [None]
  - GALLBLADDER INJURY [None]
  - PAIN [None]
  - EMOTIONAL DISTRESS [None]
